FAERS Safety Report 12211158 (Version 2)
Quarter: 2016Q2

REPORT INFORMATION
  Report Type: Report from Study
  Country: US (occurrence: US)
  Receive Date: 20160325
  Receipt Date: 20160404
  Transmission Date: 20160815
  Serious: Yes (Hospitalization, Other)
  Sender: FDA-Public Use
  Company Number: US-AMGEN-USASL2016033891

PATIENT
  Age: 55 Year
  Sex: Female

DRUGS (1)
  1. ENBREL [Suspect]
     Active Substance: ETANERCEPT
     Indication: PSORIATIC ARTHROPATHY
     Dosage: 50 MG, QWK
     Route: 065
     Dates: end: 20160219

REACTIONS (12)
  - Tongue disorder [Unknown]
  - Brain abscess [Unknown]
  - Hallucination [Unknown]
  - Dehydration [Unknown]
  - Diabetes mellitus [Unknown]
  - Nephrolithiasis [Unknown]
  - Speech disorder [Unknown]
  - Lip disorder [Unknown]
  - Dysphonia [Unknown]
  - Weight decreased [Unknown]
  - Gastroenteritis [Unknown]
  - Malaise [Unknown]

NARRATIVE: CASE EVENT DATE: 2005
